FAERS Safety Report 9238635 (Version 1)
Quarter: 2013Q2

REPORT INFORMATION
  Report Type: Spontaneous
  Country: IL (occurrence: IL)
  Receive Date: 20130418
  Receipt Date: 20130418
  Transmission Date: 20140414
  Serious: Yes (Other)
  Sender: FDA-Public Use
  Company Number: IL-CELGENEUS-082-22393-13040899

PATIENT
  Age: 60 Year
  Sex: Male

DRUGS (1)
  1. ISTODAX [Suspect]
     Indication: MYCOSIS FUNGOIDES
     Route: 065

REACTIONS (2)
  - Herpes virus infection [Unknown]
  - Dermatitis exfoliative [Unknown]
